FAERS Safety Report 23035429 (Version 1)
Quarter: 2023Q4

REPORT INFORMATION
  Report Type: Report from Study
  Country: US (occurrence: US)
  Receive Date: 20231006
  Receipt Date: 20231006
  Transmission Date: 20240110
  Serious: Yes (Other)
  Sender: FDA-Public Use
  Company Number: US-ABBVIE-5435273

PATIENT
  Sex: Female

DRUGS (1)
  1. RINVOQ [Suspect]
     Active Substance: UPADACITINIB
     Indication: Rheumatoid arthritis
     Route: 048
     Dates: start: 20220704

REACTIONS (7)
  - Diplopia [Unknown]
  - Visual impairment [Unknown]
  - Foot deformity [Unknown]
  - Renal disorder [Unknown]
  - Pain in extremity [Unknown]
  - Arthritis [Unknown]
  - Liver disorder [Unknown]
